FAERS Safety Report 7122675-9 (Version None)
Quarter: 2010Q4

REPORT INFORMATION
  Report Type: 
  Country: None (occurrence: None)
  Receive Date: 20101124
  Receipt Date: 20101123
  Transmission Date: 20110411
  Serious: Yes (Other)
  Sender: FDA-Public Use
  Company Number: AU-PFIZER INC-2010130728

PATIENT
  Age: 49 Year
  Sex: Female
  Weight: 41 kg

DRUGS (9)
  1. CHAMPIX [Suspect]
     Indication: SMOKING CESSATION THERAPY
     Dosage: 1 MG, 2X/DAY
     Route: 048
     Dates: start: 20100901, end: 20101011
  2. MERSYNDOL [Concomitant]
     Dosage: UNK
  3. MAXOLON [Concomitant]
     Dosage: UNK
  4. MORPHINE [Concomitant]
     Dosage: UNK
  5. OXYCODONE [Concomitant]
     Dosage: UNK
  6. LEVOTHYROXINE SODIUM [Concomitant]
     Dosage: UNK
  7. ALEPAM [Concomitant]
     Indication: ANXIETY
     Dosage: 30 MG, 2X/DAY
     Route: 048
  8. TRAMADOL HCL [Concomitant]
     Indication: PAIN
     Dosage: 50 MG, 3X/DAY
     Route: 048
  9. ACETAMINOPHEN W/ CODEINE [Concomitant]
     Dosage: 30 MG/500 MG EVERY FOUR HOURS
     Route: 048

REACTIONS (8)
  - ABDOMINAL DISTENSION [None]
  - CHEST PAIN [None]
  - MALAISE [None]
  - NAUSEA [None]
  - OEDEMA PERIPHERAL [None]
  - RESTLESSNESS [None]
  - WEIGHT INCREASED [None]
  - WHEEZING [None]
